FAERS Safety Report 16371534 (Version 2)
Quarter: 2019Q3

REPORT INFORMATION
  Report Type: Report from Study
  Country: US (occurrence: US)
  Receive Date: 20190530
  Receipt Date: 20190725
  Transmission Date: 20191004
  Serious: No
  Sender: FDA-Public Use
  Company Number: US-PFIZER INC-2019231005

PATIENT
  Age: 53 Year
  Sex: Female

DRUGS (1)
  1. XELJANZ XR [Suspect]
     Active Substance: TOFACITINIB CITRATE
     Dosage: 11 MG, UNK
     Dates: start: 201904

REACTIONS (3)
  - Poor quality sleep [Recovered/Resolved]
  - Fatigue [Recovered/Resolved]
  - Depressed mood [Unknown]
